FAERS Safety Report 7494258-2 (Version None)
Quarter: 2011Q2

REPORT INFORMATION
  Report Type: 
  Country: None (occurrence: None)
  Receive Date: 20110520
  Receipt Date: 20110511
  Transmission Date: 20111010
  Serious: Yes (Other)
  Sender: FDA-Public Use
  Company Number: FR-AMGEN-FRASP2011025814

PATIENT
  Age: 32 Year
  Sex: Female

DRUGS (2)
  1. ENBREL [Suspect]
     Indication: ANKYLOSING SPONDYLITIS
     Dosage: 50 MG, WEEKLY
  2. IVABRADINE [Concomitant]
     Dosage: UNK

REACTIONS (6)
  - BLOOD PROLACTIN INCREASED [None]
  - HOT FLUSH [None]
  - HAEMORRHAGIC DIATHESIS [None]
  - THROMBOCYTOPENIA [None]
  - PETECHIAE [None]
  - AMENORRHOEA [None]
